FAERS Safety Report 18328402 (Version 1)
Quarter: 2020Q3

REPORT INFORMATION
  Report Type: Spontaneous
  Country: NO (occurrence: NO)
  Receive Date: 20200930
  Receipt Date: 20200930
  Transmission Date: 20201103
  Serious: Yes (Hospitalization, Other)
  Sender: FDA-Public Use
  Company Number: NO-ABBVIE-20K-122-3584005-00

PATIENT
  Sex: Male

DRUGS (4)
  1. HUMIRA [Suspect]
     Active Substance: ADALIMUMAB
     Indication: ANKYLOSING SPONDYLITIS
     Route: 058
     Dates: start: 20160105
  2. FEXOFENADINE [Concomitant]
     Active Substance: FEXOFENADINE HYDROCHLORIDE
     Indication: PRODUCT USED FOR UNKNOWN INDICATION
     Route: 065
  3. AERIUS [Concomitant]
     Indication: PRODUCT USED FOR UNKNOWN INDICATION
     Route: 048
  4. HUMIRA [Suspect]
     Active Substance: ADALIMUMAB
     Indication: CROHN^S DISEASE
     Route: 058
     Dates: start: 20151222, end: 20160105

REACTIONS (35)
  - Dizziness [Unknown]
  - Dyspnoea [Unknown]
  - Throat tightness [Unknown]
  - Blood pressure decreased [Unknown]
  - Nasal oedema [Unknown]
  - Throat tightness [Unknown]
  - Anaphylactic reaction [Unknown]
  - Dyspnoea [Unknown]
  - Chest discomfort [Unknown]
  - Oral mucosal eruption [Unknown]
  - Rash [Unknown]
  - Tachycardia [Unknown]
  - Musculoskeletal stiffness [Unknown]
  - Sensation of foreign body [Unknown]
  - Rash [Unknown]
  - Hypersensitivity [Recovered/Resolved]
  - Foreign body in throat [Unknown]
  - Dysphonia [Unknown]
  - Urticaria [Unknown]
  - Dyspnoea [Recovering/Resolving]
  - Chest pain [Unknown]
  - Hypersensitivity [Recovered/Resolved]
  - Dizziness [Unknown]
  - Pruritus [Unknown]
  - Mechanical urticaria [Unknown]
  - Hospitalisation [Recovered/Resolved]
  - Swelling of eyelid [Unknown]
  - Flushing [Unknown]
  - Swelling face [Unknown]
  - Angioedema [Unknown]
  - Paraesthesia [Unknown]
  - Dyspnoea [Recovered/Resolved]
  - Anaphylactic shock [Unknown]
  - Pharyngeal swelling [Recovering/Resolving]
  - Rash [Unknown]

NARRATIVE: CASE EVENT DATE: 201512
